FAERS Safety Report 6232537-7 (Version None)
Quarter: 2009Q2

REPORT INFORMATION
  Report Type: 
  Country: None (occurrence: None)
  Receive Date: 20090617
  Receipt Date: 20090605
  Transmission Date: 20091009
  Serious: Yes (Hospitalization, Other)
  Sender: FDA-Public Use
  Company Number: FR-ELI_LILLY_AND_COMPANY-FR200811003018

PATIENT
  Sex: Female
  Weight: 60 kg

DRUGS (8)
  1. FORTEO [Suspect]
     Indication: OSTEOPOROSIS
     Dosage: 20 UG, DAILY (1/D)
     Route: 058
     Dates: start: 20081101
  2. SIMVASTATIN [Concomitant]
     Indication: DYSLIPIDAEMIA
     Dosage: 80 MG, DAILY (1/D)
     Route: 048
     Dates: start: 20080711
  3. KARDEGIC /00002703/ [Concomitant]
     Indication: MYOCARDIAL ISCHAEMIA
     Dosage: 75 MG, DAILY (1/D)
     Route: 048
     Dates: start: 20080711
  4. CORTANCYL [Concomitant]
     Indication: RHEUMATOID ARTHRITIS
     Dosage: 4 MG, DAILY (1/D)
     Route: 048
  5. PLAVIX [Concomitant]
     Indication: MYOCARDIAL ISCHAEMIA
     Dosage: 75 MG, 2/D
     Route: 048
     Dates: start: 20080711
  6. SECTRAL [Concomitant]
     Indication: HYPERTENSION
  7. DIFFU K [Concomitant]
     Indication: HYPERTENSION
     Dosage: 1800 MG, DAILY (1/D)
  8. SALAZOPYRINE [Concomitant]
     Indication: RHEUMATOID ARTHRITIS

REACTIONS (2)
  - ANGINA PECTORIS [None]
  - CORONARY ARTERY DISEASE [None]
